FAERS Safety Report 16721903 (Version 2)
Quarter: 2020Q1

REPORT INFORMATION
  Report Type: Report from Study
  Country: None (occurrence: US)
  Receive Date: 20190820
  Receipt Date: 20200109
  Transmission Date: 20200409
  Serious: Yes (Hospitalization, Other)
  Sender: FDA-Public Use
  Company Number: US-ABBVIE-19K-163-2881140-00

PATIENT
  Age: 28 Year
  Sex: Male
  Weight: 81.72 kg

DRUGS (1)
  1. HUMIRA [Suspect]
     Active Substance: ADALIMUMAB
     Indication: CROHN^S DISEASE
     Dosage: STARTER PACK TOTAL 3 DOSES
     Route: 058
     Dates: start: 20190311, end: 20190405

REACTIONS (5)
  - Small intestinal resection [Unknown]
  - Neoplasm malignant [Recovered/Resolved]
  - Infection [Unknown]
  - Therapeutic product effect incomplete [Unknown]
  - Pyrexia [Recovered/Resolved]

NARRATIVE: CASE EVENT DATE: 2019
